FAERS Safety Report 5968035-5 (Version None)
Quarter: 2008Q4

REPORT INFORMATION
  Report Type: 
  Country: None (occurrence: None)
  Receive Date: 20081121
  Receipt Date: 20081107
  Transmission Date: 20090506
  Serious: Yes (Hospitalization)
  Sender: FDA-Public Use
  Company Number: GB-JNJFOC-20081102195

PATIENT
  Age: 47 Year
  Sex: Female

DRUGS (3)
  1. DECITABINE (DECITABINE) LYOPHILIZED [Suspect]
     Indication: OVARIAN CANCER
     Dosage: CYCLE 1
     Dates: end: 20080601
  2. CARBOPLATIN [Suspect]
     Indication: OVARIAN CANCER
     Dosage: 680 MG, 1 IN 1 CYCLICAL, INTRAVENOUS, 680 MG, 1 IN 1 CYCLICAL, INTRAVENOUS
     Route: 042
     Dates: start: 20081006, end: 20081006
  3. CARBOPLATIN [Suspect]
     Indication: OVARIAN CANCER
     Dosage: 680 MG, 1 IN 1 CYCLICAL, INTRAVENOUS, 680 MG, 1 IN 1 CYCLICAL, INTRAVENOUS
     Route: 042
     Dates: start: 20081103, end: 20081103

REACTIONS (2)
  - HYPERSENSITIVITY [None]
  - INFUSION RELATED REACTION [None]
